FAERS Safety Report 5307906-X (Version None)
Quarter: 2007Q2

REPORT INFORMATION
  Report Type: 
  Country: None (occurrence: None)
  Receive Date: 20070420
  Receipt Date: 20070411
  Transmission Date: 20071010
  Serious: Yes (Other)
  Sender: FDA-Public Use
  Company Number: 200612IM000693

PATIENT
  Age: 53 Year
  Sex: Female
  Weight: 68.0396 kg

DRUGS (20)
  1. INTERFERON GAMMA-1B [Suspect]
     Indication: IDIOPATHIC PULMONARY FIBROSIS
     Dosage: TIW, SUBCUTANEOUS
     Route: 058
     Dates: end: 20060630
  2. GLUCARON [Concomitant]
  3. CETIRIZINE HCL [Concomitant]
  4. ATENOLOL [Concomitant]
  5. ASCORBIC ACID [Concomitant]
  6. VITAMIN E [Concomitant]
  7. ASPIRIN [Concomitant]
  8. MOMETASONE FUROATE [Concomitant]
  9. VITAMIN B COMPLEX CAP [Concomitant]
  10. OXYCONTIN [Concomitant]
  11. VICODIN [Concomitant]
  12. LOSARTAN POSTASSIUM [Concomitant]
  13. TRIAMCINOLONE [Concomitant]
  14. FERROUS SULFATE TAB [Concomitant]
  15. METFORMIN HCL [Concomitant]
  16. AZATHIOPRINE [Concomitant]
  17. KLOR-CON [Concomitant]
  18. FENOFIBRATE ^RATIOPHARM^ [Concomitant]
  19. BENZONATATE [Concomitant]
  20. ATIVAN [Concomitant]

REACTIONS (5)
  - CHEST PAIN [None]
  - CHOLECYSTITIS [None]
  - PALPITATIONS [None]
  - PULMONARY OEDEMA [None]
  - URETHRAL PAIN [None]
